FAERS Safety Report 13699905 (Version 2)
Quarter: 2017Q3

REPORT INFORMATION
  Report Type: Report from Study
  Country: US (occurrence: US)
  Receive Date: 20170629
  Receipt Date: 20170825
  Transmission Date: 20171127
  Serious: Yes (Other)
  Sender: FDA-Public Use
  Company Number: PHEH2017US019290

PATIENT
  Sex: Male

DRUGS (2)
  1. ENTRESTO [Suspect]
     Active Substance: SACUBITRIL\VALSARTAN
     Dosage: 1 DF (97 MG SACUBITRIL, 103 MG VALSARTAN), UNK
     Route: 065
  2. ENTRESTO [Suspect]
     Active Substance: SACUBITRIL\VALSARTAN
     Indication: PRODUCT USED FOR UNKNOWN INDICATION
     Dosage: 1 DF (24 MG SACUBITRIL, 97 MG VALSARTAN), UNK
     Route: 065
     Dates: start: 2017

REACTIONS (6)
  - Blood pressure decreased [Unknown]
  - Balance disorder [Unknown]
  - Therapeutic response decreased [Unknown]
  - Dizziness postural [Unknown]
  - Asthenia [Unknown]
  - Feeling drunk [Unknown]
